FAERS Safety Report 6154390-2 (Version None)
Quarter: 2009Q2

REPORT INFORMATION
  Report Type: 
  Country: None (occurrence: None)
  Receive Date: 20090414
  Receipt Date: 20090402
  Transmission Date: 20091009
  Serious: Yes (Hospitalization)
  Sender: FDA-Public Use
  Company Number: FR-ELI_LILLY_AND_COMPANY-FR200904000712

PATIENT
  Age: 74 Year
  Sex: Female

DRUGS (5)
  1. FORTEO [Suspect]
     Indication: OSTEOPOROSIS
     Dosage: 20 UG, DAILY (1/D)
     Route: 065
     Dates: start: 20080326
  2. DIFFU K [Concomitant]
     Dosage: UNK, UNKNOWN
     Route: 065
  3. FENOFIBRATE [Concomitant]
     Dosage: 200 MG, UNKNOWN
     Route: 065
  4. CACIT D3 [Concomitant]
     Dosage: UNK, UNKNOWN
     Route: 065
  5. DOLIPRANE [Concomitant]
     Dosage: UNK, UNKNOWN
     Route: 065

REACTIONS (3)
  - FALL [None]
  - MALAISE [None]
  - WRIST FRACTURE [None]
